FAERS Safety Report 7201088-5 (Version None)
Quarter: 2010Q4

REPORT INFORMATION
  Report Type: 
  Country: None (occurrence: None)
  Receive Date: 20101229
  Receipt Date: 20101217
  Transmission Date: 20110411
  Serious: No
  Sender: FDA-Public Use
  Company Number: US-BIOGENIDEC-2010BI037800

PATIENT
  Age: 46 Year
  Sex: Female

DRUGS (1)
  1. TYSABRI [Suspect]
     Indication: MULTIPLE SCLEROSIS
     Route: 042
     Dates: start: 20100928

REACTIONS (5)
  - ASTHENIA [None]
  - BALANCE DISORDER [None]
  - EMOTIONAL DISORDER [None]
  - GAIT DISTURBANCE [None]
  - MUSCLE SPASTICITY [None]
